FAERS Safety Report 12514806 (Version 1)
Quarter: 2016Q2

REPORT INFORMATION
  Report Type: Spontaneous
  Country: US (occurrence: None)
  Receive Date: 20160629
  Receipt Date: 20160629
  Transmission Date: 20160815
  Serious: No
  Sender: FDA-Public Use
  Company Number: None

PATIENT
  Age: 26 Year
  Sex: Male

DRUGS (1)
  1. NALTREXONE [Suspect]
     Active Substance: NALTREXONE
     Route: 048
     Dates: start: 20151028, end: 20151112

REACTIONS (1)
  - Vomiting [None]

NARRATIVE: CASE EVENT DATE: 20151112
